FAERS Safety Report 8925639 (Version 1)
Quarter: 2012Q4

REPORT INFORMATION
  Report Type: 
  Country: CO (occurrence: CO)
  Receive Date: 20121126
  Receipt Date: 20121126
  Transmission Date: 20130627
  Serious: Yes (Other)
  Sender: FDA-Public Use
  Company Number: CO-PFIZER INC-2012294894

PATIENT
  Age: 49 Year
  Sex: Female

DRUGS (3)
  1. LYRICA [Suspect]
     Indication: BIPOLAR DISORDER
     Dosage: 150 mg, 1x/day
     Route: 048
     Dates: start: 2007
  2. VALPROIC ACID [Concomitant]
     Indication: BIPOLAR DISORDER
     Dosage: 250 mg, 2x/day (one in the morning and one at night)
     Route: 048
     Dates: start: 2007
  3. ATIVAN [Concomitant]
     Indication: BIPOLAR DISORDER
     Dosage: 2 mg, 2x/day (one in the morning and one at night)
     Route: 048
     Dates: start: 2007

REACTIONS (3)
  - Uterine haemorrhage [Unknown]
  - Uterine leiomyoma [Unknown]
  - Off label use [Unknown]
